FAERS Safety Report 4315724-4 (Version None)
Quarter: 2004Q1

REPORT INFORMATION
  Report Type: 
  Country: None (occurrence: None)
  Receive Date: 20040303
  Receipt Date: 20031003
  Transmission Date: 20041129
  Serious: Yes (Hospitalization, Other)
  Sender: FDA-Public Use
  Company Number: 200325374BWH

PATIENT

DRUGS (3)
  1. TRASYLOL [Suspect]
  2. PROTAMINE SULFATE [Suspect]
  3. NPH INSULIN [Concomitant]

REACTIONS (2)
  - BLOOD PRESSURE ABNORMAL [None]
  - VASCULAR GRAFT OCCLUSION [None]
